FAERS Safety Report 4414413-5 (Version None)
Quarter: 2004Q3

REPORT INFORMATION
  Report Type: 
  Country: None (occurrence: None)
  Receive Date: 20040706
  Receipt Date: 20040326
  Transmission Date: 20050211
  Serious: Yes (Other)
  Sender: FDA-Public Use
  Company Number: 001124

PATIENT
  Age: 78 Year
  Sex: Male
  Weight: 86.2 kg

DRUGS (5)
  1. ETHAMBUTOL HCL [Suspect]
     Indication: BRONCHIECTASIS
     Dosage: 1.00 TABLET, BID, ORAL
     Route: 048
     Dates: start: 20030501, end: 20040221
  2. ATENOLOL [Concomitant]
  3. COUMADIN [Concomitant]
  4. BIAXIN [Concomitant]
  5. RIFAMPICIN [Concomitant]

REACTIONS (1)
  - OPTIC NEURITIS [None]
